FAERS Safety Report 5257373-X (Version None)
Quarter: 2007Q1

REPORT INFORMATION
  Report Type: 
  Country: None (occurrence: None)
  Receive Date: 20070307
  Receipt Date: 20060927
  Transmission Date: 20070707
  Serious: No
  Sender: FDA-Public Use
  Company Number: US-GLAXOSMITHKLINE-A0604074A

PATIENT
  Age: 54 Year
  Sex: Female

DRUGS (2)
  1. REQUIP [Suspect]
     Dosage: 2MG FIVE TIMES PER DAY
     Route: 048
     Dates: start: 20020225, end: 20050101
  2. KLONOPIN [Concomitant]
     Indication: DRUG USE FOR UNKNOWN INDICATION
     Dosage: 1MG AT NIGHT
     Route: 048

REACTIONS (1)
  - GAMBLING [None]
